FAERS Safety Report 11609282 (Version 1)
Quarter: 2015Q4

REPORT INFORMATION
  Report Type: Other
  Country: US (occurrence: US)
  Receive Date: 20151007
  Receipt Date: 20151007
  Transmission Date: 20160304
  Serious: Yes (Hospitalization)
  Sender: FDA-Public Use
  Company Number: US-CONCORDIA PHARMACEUTICALS INC.-CO-KP-US-2015-013

PATIENT
  Age: 68 Year
  Sex: Male

DRUGS (5)
  1. CLONIDINE. [Suspect]
     Active Substance: CLONIDINE
     Route: 048
  2. LISINOPRIL. [Concomitant]
     Active Substance: LISINOPRIL
  3. LORAZEPAM. [Concomitant]
     Active Substance: LORAZEPAM
  4. ZYREXIN [Suspect]
     Active Substance: HERBALS
  5. OXYCODONE [Concomitant]
     Active Substance: OXYCODONE

REACTIONS (5)
  - Drug withdrawal syndrome [None]
  - Drug interaction [None]
  - Hypertension [None]
  - Drug ineffective [None]
  - Tachycardia [None]
